FAERS Safety Report 16934328 (Version 1)
Quarter: 2019Q4

REPORT INFORMATION
  Report Type: Spontaneous
  Country: US (occurrence: US)
  Receive Date: 20190826
  Receipt Date: 20190826
  Transmission Date: 20200122
  Serious: Yes (Hospitalization)
  Sender: FDA-Public Use
  Company Number: None

PATIENT
  Age: 71 Year
  Sex: Female
  Weight: 55.8 kg

DRUGS (11)
  1. KEYTRUDA [Suspect]
     Active Substance: PEMBROLIZUMAB
     Indication: BREAST CANCER METASTATIC
     Route: 042
     Dates: start: 20190701
  2. KEYTRUDA [Suspect]
     Active Substance: PEMBROLIZUMAB
     Indication: BREAST CANCER METASTATIC
     Route: 042
     Dates: start: 20190722
  3. KEYTRUDA [Suspect]
     Active Substance: PEMBROLIZUMAB
     Indication: OESTROGEN RECEPTOR POSITIVE BREAST CANCER
     Route: 042
     Dates: start: 20190701
  4. KEYTRUDA [Suspect]
     Active Substance: PEMBROLIZUMAB
     Indication: INFLAMMATORY CARCINOMA OF THE BREAST
     Route: 042
     Dates: start: 20190722
  5. FOLLIC ACID [Concomitant]
  6. SYNTHROID [Concomitant]
     Active Substance: LEVOTHYROXINE SODIUM
  7. KEYTRUDA [Suspect]
     Active Substance: PEMBROLIZUMAB
     Indication: OESTROGEN RECEPTOR POSITIVE BREAST CANCER
     Route: 042
     Dates: start: 20190722
  8. KEYTRUDA [Suspect]
     Active Substance: PEMBROLIZUMAB
     Indication: INFLAMMATORY CARCINOMA OF THE BREAST
     Route: 042
     Dates: start: 20190701
  9. CYMBALTA [Concomitant]
     Active Substance: DULOXETINE HYDROCHLORIDE
  10. REMERON (MIRTAZIPINE) [Concomitant]
  11. MAGNESIUM [Concomitant]
     Active Substance: MAGNESIUM

REACTIONS (6)
  - Diarrhoea [None]
  - Immune-mediated enterocolitis [None]
  - Decreased appetite [None]
  - Fatigue [None]
  - Asthenia [None]
  - Therapy cessation [None]

NARRATIVE: CASE EVENT DATE: 20190808
